FAERS Safety Report 9933103 (Version 2)
Quarter: 2014Q1

REPORT INFORMATION
  Report Type: Spontaneous
  Country: US (occurrence: None)
  Receive Date: 20140226
  Receipt Date: 20140306
  Transmission Date: 20141002
  Serious: Yes (Other)
  Sender: FDA-Public Use
  Company Number: 2014-0389-CLI

PATIENT
  Age: 25 Year
  Sex: Female

DRUGS (6)
  1. ESTRADIOL [Suspect]
     Indication: HORMONE REPLACEMENT THERAPY
     Dosage: 1 IN 1 D
  2. PROGESTIN (PROGESTERONE) [Suspect]
     Indication: HORMONE REPLACEMENT THERAPY
     Dosage: 1 IN 1 D
  3. LUPRON DEPOT [Suspect]
     Indication: ENDOMETRIOSIS
     Dosage: 1 M
     Dates: start: 20131017
  4. FLONASE [Concomitant]
  5. PRENATAL VITAMINS [Concomitant]
  6. VITAMIN C [Concomitant]

REACTIONS (23)
  - Abdominal adhesions [None]
  - Cervical dysplasia [None]
  - Dyspareunia [None]
  - Menometrorrhagia [None]
  - Mood altered [None]
  - Adnexa uteri pain [None]
  - Endometriosis [None]
  - Hot flush [None]
  - Abdominal pain [None]
  - Rectal spasm [None]
  - Abdominal distension [None]
  - Initial insomnia [None]
  - Irritability [None]
  - Abdominal distension [None]
  - Abdominal pain lower [None]
  - Proctalgia [None]
  - Vaginal haemorrhage [None]
  - Thrombosis [None]
  - Breast enlargement [None]
  - Mood swings [None]
  - Adnexa uteri pain [None]
  - Initial insomnia [None]
  - Middle insomnia [None]
